FAERS Safety Report 10177344 (Version 2)
Quarter: 2014Q2

REPORT INFORMATION
  Report Type: Report from Study
  Country: AU (occurrence: AU)
  Receive Date: 20140516
  Receipt Date: 20140626
  Transmission Date: 20141212
  Serious: Yes (Life-Threatening, Hospitalization, Disabling, Other)
  Sender: FDA-Public Use
  Company Number: AU-ASTRAZENECA-2014SE33109

PATIENT
  Age: 0 Day
  Sex: Male
  Weight: 3 kg

DRUGS (3)
  1. SEROQUEL IR [Suspect]
     Indication: PSYCHOTIC DISORDER
     Dosage: 25-50 MG/DAY, STARTED PREPREGNANCY
     Route: 064
  2. SERTRALINE HYDROCHLORIDE [Suspect]
     Indication: ANTIDEPRESSANT THERAPY
     Dosage: 200 MG DAILY, STARTED FROM 6/40 WEEKS
     Route: 064
  3. BLACKMORES P+BF FORMULA [Concomitant]
     Indication: VITAMIN SUPPLEMENTATION
     Dosage: 2 TABLETS/DAY, STARTED 1ST TRIMESTER, STOPPED AT BIRTH
     Route: 064

REACTIONS (4)
  - Foetal exposure during pregnancy [Unknown]
  - Premature baby [Not Recovered/Not Resolved]
  - Respiratory distress [Not Recovered/Not Resolved]
  - Weight decrease neonatal [Not Recovered/Not Resolved]
